FAERS Safety Report 7150728-8 (Version None)
Quarter: 2010Q4

REPORT INFORMATION
  Report Type: 
  Country: None (occurrence: None)
  Receive Date: 20101207
  Receipt Date: 20101207
  Transmission Date: 20110411
  Serious: No
  Sender: FDA-Public Use
  Company Number: None

PATIENT
  Age: 67 Year
  Sex: Male
  Weight: 90.2658 kg

DRUGS (2)
  1. OXALIPLATIN [Suspect]
     Indication: COLON CANCER METASTATIC
     Dosage: 120 MG Q2 W IV
     Route: 042
     Dates: start: 20100126, end: 20101130
  2. XELODA [Suspect]

REACTIONS (7)
  - BLOOD MAGNESIUM [None]
  - CHILLS [None]
  - DYSPNOEA [None]
  - ERYTHEMA [None]
  - POLLAKIURIA [None]
  - THIRST [None]
  - UROGRAM [None]
